FAERS Safety Report 22605789 (Version 1)
Quarter: 2023Q2

REPORT INFORMATION
  Report Type: Spontaneous
  Country: US (occurrence: None)
  Receive Date: 20230614
  Receipt Date: 20230614
  Transmission Date: 20230721
  Serious: Yes (Other)
  Sender: FDA-Public Use
  Company Number: None

PATIENT
  Age: 70 Year
  Sex: Male
  Weight: 139.95 kg

DRUGS (12)
  1. TRULICITY [Suspect]
     Active Substance: DULAGLUTIDE
     Indication: Type 2 diabetes mellitus
     Dosage: OTHER QUANTITY : 1 INJECTION(S);?OTHER FREQUENCY : ONCE A WEEK;?
     Route: 058
     Dates: start: 20221214, end: 20230428
  2. LANTUS [Concomitant]
     Active Substance: INSULIN GLARGINE
  3. HUMALOG [Concomitant]
     Active Substance: INSULIN LISPRO
  4. ASPIRIN [Concomitant]
     Active Substance: ASPIRIN
  5. LASIX [Concomitant]
     Active Substance: FUROSEMIDE
  6. HYDROCHLOROTHIAZIDE [Concomitant]
     Active Substance: HYDROCHLOROTHIAZIDE
  7. SIMVASTATIN [Concomitant]
     Active Substance: SIMVASTATIN
  8. COREG [Concomitant]
     Active Substance: CARVEDILOL
  9. GLIMEPIRIDE [Concomitant]
     Active Substance: GLIMEPIRIDE
  10. LISINOPRIL [Concomitant]
     Active Substance: LISINOPRIL
  11. BENADRYL [Concomitant]
     Active Substance: DIPHENHYDRAMINE HYDROCHLORIDE
  12. EQUATE MULTIVITMAINS [Concomitant]

REACTIONS (3)
  - Acute kidney injury [None]
  - Vision blurred [None]
  - Hypoglycaemia [None]

NARRATIVE: CASE EVENT DATE: 20230426
